FAERS Safety Report 24576178 (Version 3)
Quarter: 2024Q4

REPORT INFORMATION
  Report Type: Spontaneous
  Country: JP (occurrence: JP)
  Receive Date: 20241104
  Receipt Date: 20241206
  Transmission Date: 20250115
  Serious: Yes (Other)
  Sender: ROCHE
  Company Number: JP-002147023-NVSJ2024JP012756

PATIENT
  Age: 62 Year
  Sex: Female

DRUGS (1)
  1. LUCENTIS [Suspect]
     Active Substance: RANIBIZUMAB
     Indication: Retinal vein occlusion
     Route: 050

REACTIONS (2)
  - Macular hole [Recovering/Resolving]
  - Wrong technique in product usage process [Unknown]
